FAERS Safety Report 15408795 (Version 4)
Quarter: 2018Q4

REPORT INFORMATION
  Report Type: Spontaneous
  Country: MX (occurrence: MX)
  Receive Date: 20180920
  Receipt Date: 20181009
  Transmission Date: 20190204
  Serious: Yes (Other)
  Sender: FDA-Public Use
  Company Number: PHHY2018MX056667

PATIENT
  Age: 15 Year
  Sex: Male

DRUGS (3)
  1. OMALIZUMAB. [Suspect]
     Active Substance: OMALIZUMAB
     Indication: HYPERSENSITIVITY
     Dosage: 600 UG, BIW
     Route: 065
  2. OLOPATADINE. [Suspect]
     Active Substance: OLOPATADINE
     Indication: CONJUNCTIVITIS
     Route: 047
  3. CICLOSPORIN [Suspect]
     Active Substance: CYCLOSPORINE
     Indication: CONJUNCTIVITIS
     Dosage: UNK
     Route: 065

REACTIONS (6)
  - Product use in unapproved indication [Unknown]
  - Dyspnoea [Unknown]
  - Drug ineffective [Unknown]
  - Respiratory distress [Unknown]
  - Anaphylactic reaction [Unknown]
  - Angioedema [Unknown]

NARRATIVE: CASE EVENT DATE: 2015
